FAERS Safety Report 17929296 (Version 1)
Quarter: 2020Q2

REPORT INFORMATION
  Report Type: Spontaneous
  Country: US (occurrence: US)
  Receive Date: 20200622
  Receipt Date: 20200622
  Transmission Date: 20200714
  Serious: Yes (Hospitalization)
  Sender: FDA-Public Use
  Company Number: None

PATIENT
  Sex: Female

DRUGS (33)
  1. COLSESVELAM [Concomitant]
  2. EZETIMIBE. [Concomitant]
     Active Substance: EZETIMIBE
  3. FLOVENT HFA AER [Concomitant]
  4. DIPHEN/ATROP [Concomitant]
     Active Substance: ATROPINE SULFATE\DIPHENOXYLATE
  5. NYSTATIN. [Concomitant]
     Active Substance: NYSTATIN
  6. CIMZIA [Suspect]
     Active Substance: CERTOLIZUMAB PEGOL
     Indication: CROHN^S DISEASE
     Dosage: ?          OTHER FREQUENCY:EVERY 14 DAYS;?
     Route: 058
     Dates: start: 201802
  7. BUDESONIDE. [Concomitant]
     Active Substance: BUDESONIDE
  8. CHOLESTYRAM [Concomitant]
     Active Substance: CHOLESTYRAMINE
  9. TIMOLOL. [Concomitant]
     Active Substance: TIMOLOL
  10. HYDROCO/APAP [Concomitant]
     Active Substance: ACETAMINOPHEN\HYDROCODONE
  11. LABETALOL [Concomitant]
     Active Substance: LABETALOL\LABETALOL HYDROCHLORIDE
  12. SODIUM BICAR [Concomitant]
  13. AMOXICILLIN. [Concomitant]
     Active Substance: AMOXICILLIN
  14. APAP/CODEINE [Concomitant]
     Active Substance: ACETAMINOPHEN\CODEINE PHOSPHATE
  15. FLUCONAZOLE. [Concomitant]
     Active Substance: FLUCONAZOLE
  16. ONDANSETRON [Concomitant]
     Active Substance: ONDANSETRON
  17. HYDRALAZINE [Concomitant]
     Active Substance: HYDRALAZINE HYDROCHLORIDE
  18. AMLODIPINE [Concomitant]
     Active Substance: AMLODIPINE BESYLATE
  19. CLOPIDOGREL [Concomitant]
     Active Substance: CLOPIDOGREL BISULFATE
  20. FUROSEMIDE. [Concomitant]
     Active Substance: FUROSEMIDE
  21. NIFEDIPINE. [Concomitant]
     Active Substance: NIFEDIPINE
  22. MECLIZINE [Concomitant]
     Active Substance: MECLIZINE HYDROCHLORIDE
  23. CARVEDILOL. [Concomitant]
     Active Substance: CARVEDILOL
  24. FEBUXOSTAT. [Concomitant]
     Active Substance: FEBUXOSTAT
  25. LORAZEPAM. [Concomitant]
     Active Substance: LORAZEPAM
  26. METOPROLOL TARTRATE. [Concomitant]
     Active Substance: METOPROLOL TARTRATE
  27. AZATHIOPRINE. [Concomitant]
     Active Substance: AZATHIOPRINE
  28. CYANOCOBALAM [Concomitant]
     Active Substance: CYANOCOBALAMIN
  29. DICYCLOMINE [Concomitant]
     Active Substance: DICYCLOMINE HYDROCHLORIDE
  30. PREDNISONE. [Concomitant]
     Active Substance: PREDNISONE
  31. BROM/PSE/DM [Concomitant]
  32. COLCHICINE. [Concomitant]
     Active Substance: COLCHICINE
  33. DORZOL/TIMOL [Concomitant]

REACTIONS (3)
  - Heart rate increased [None]
  - Therapy change [None]
  - Product use issue [None]
